FAERS Safety Report 10443787 (Version 2)
Quarter: 2014Q3

REPORT INFORMATION
  Report Type: Spontaneous
  Country: US (occurrence: US)
  Receive Date: 20140910
  Receipt Date: 20140910
  Transmission Date: 20150326
  Serious: Yes (Other)
  Sender: FDA-Public Use
  Company Number: US-AMGEN-USASP2014055572

PATIENT
  Age: 44 Year
  Sex: Female

DRUGS (2)
  1. ENBREL [Suspect]
     Active Substance: ETANERCEPT
     Indication: ANKYLOSING SPONDYLITIS
     Dosage: UNK
     Route: 065
  2. ENBREL [Suspect]
     Active Substance: ETANERCEPT
     Indication: RHEUMATOID ARTHRITIS
     Dosage: 50 MG, QWK
     Route: 065
     Dates: start: 20140427

REACTIONS (10)
  - Diarrhoea [Recovered/Resolved]
  - Gastroenteritis [Recovered/Resolved]
  - Pyrexia [Recovered/Resolved]
  - Back pain [Unknown]
  - Toothache [Not Recovered/Not Resolved]
  - Joint swelling [Unknown]
  - Haematochezia [Not Recovered/Not Resolved]
  - Fatigue [Unknown]
  - Device failure [Recovered/Resolved]
  - Arthralgia [Unknown]

NARRATIVE: CASE EVENT DATE: 2014
